FAERS Safety Report 11321493 (Version 3)
Quarter: 2015Q3

REPORT INFORMATION
  Report Type: Report from Study
  Country: FR (occurrence: FR)
  Receive Date: 20150729
  Receipt Date: 20150925
  Transmission Date: 20151125
  Serious: Yes (Hospitalization)
  Sender: FDA-Public Use
  Company Number: FR-AMGEN-FRACT2015073838

PATIENT
  Age: 55 Year
  Sex: Male
  Weight: 75 kg

DRUGS (9)
  1. PECFENT [Concomitant]
     Active Substance: FENTANYL CITRATE
     Dosage: 100 MUG, Q4H AS NEEDED
     Route: 048
     Dates: start: 20141001
  2. VELBE [Concomitant]
     Active Substance: VINBLASTINE SULFATE
     Indication: BLADDER TRANSITIONAL CELL CARCINOMA
     Dosage: 6 MG, 1 TIMES PER 1 CYCLE
     Route: 042
     Dates: start: 20131030, end: 20131227
  3. CISPLATINE [Concomitant]
     Active Substance: CISPLATIN
     Indication: BLADDER TRANSITIONAL CELL CARCINOMA
     Dosage: 140 MG, 1 TIMES PER 1 CYCLE
     Dates: start: 20131030, end: 20131227
  4. POLARAMINE [Concomitant]
     Active Substance: DEXCHLORPHENIRAMINE MALEATE
     Dosage: 200 MG, UNK
     Route: 048
     Dates: start: 20131030, end: 20141015
  5. PANITUMUMAB [Suspect]
     Active Substance: PANITUMUMAB
     Indication: BLADDER TRANSITIONAL CELL CARCINOMA
     Dosage: 500 MG, 1 TIMES PER 1 CYCLE
     Route: 042
     Dates: start: 20131030, end: 20141015
  6. DOXORUBICINE                       /00330901/ [Concomitant]
     Active Substance: DOXORUBICIN
     Indication: BLADDER TRANSITIONAL CELL CARCINOMA
     Dosage: 60 MG, 1 TIMES PER 1 CYCLE
     Route: 042
     Dates: start: 20131030, end: 20131227
  7. LAMALINE                           /00764901/ [Concomitant]
     Active Substance: ACETAMINOPHEN\BELLADONNA LEAF\CAFFEINE\OPIUM TINCTURE
     Dosage: UNK
     Route: 048
     Dates: start: 20141001
  8. METHOTREXATE [Concomitant]
     Active Substance: METHOTREXATE
     Indication: BLADDER TRANSITIONAL CELL CARCINOMA
     Dosage: 59 MG, 1 TIMER PER 1 CYCLE
     Route: 042
     Dates: start: 20131029, end: 20131226
  9. METHYLPREDNISOLONE. [Concomitant]
     Active Substance: METHYLPREDNISOLONE
     Dosage: 6000 MG, UNK
     Route: 042
     Dates: start: 20131030, end: 20141015

REACTIONS (1)
  - Posterior reversible encephalopathy syndrome [Recovered/Resolved]

NARRATIVE: CASE EVENT DATE: 20141027
